FAERS Safety Report 6609653-0 (Version None)
Quarter: 2010Q1

REPORT INFORMATION
  Report Type: 
  Country: None (occurrence: None)
  Receive Date: 20100214
  Receipt Date: 20090908
  Transmission Date: 20100710
  Serious: Yes (Other)
  Sender: FDA-Public Use
  Company Number: MEDI-0008830

PATIENT
  Age: 64 Year
  Sex: Female
  Weight: 7.2576 kg

DRUGS (10)
  1. ETHYOL [Suspect]
     Indication: PROPHYLAXIS
     Dosage: 1650 MG, INTRAVENOUS (NOT OTHERWISE SPECIFIED)
     Route: 042
     Dates: start: 20090629, end: 20090629
  2. ETHYOL [Suspect]
     Indication: PROPHYLAXIS
     Dosage: 1650 MG, INTRAVENOUS (NOT OTHERWISE SPECIFIED)
     Route: 042
     Dates: start: 20090706, end: 20090803
  3. AMLODIPINE [Concomitant]
  4. TRICOR [Concomitant]
  5. ZOCOR [Concomitant]
  6. EVISTA [Concomitant]
  7. FISH OIL (FISH OIL) [Concomitant]
  8. ASPIRIN [Concomitant]
  9. VITAMINS [Concomitant]
  10. CISPLATIN [Concomitant]

REACTIONS (2)
  - ABDOMINAL DISCOMFORT [None]
  - HYPOTENSION [None]
